FAERS Safety Report 11174062 (Version 1)
Quarter: 2015Q2

REPORT INFORMATION
  Report Type: Spontaneous
  Country: GB (occurrence: None)
  Receive Date: 20150605
  Receipt Date: 20150605
  Transmission Date: 20150821
  Serious: Yes (Other)
  Sender: FDA-Public Use
  Company Number: GB-DEXPHARM-20150340

PATIENT
  Age: 54 Year
  Sex: Male
  Weight: 70 kg

DRUGS (2)
  1. LEVOTHYROXINE [Concomitant]
     Active Substance: LEVOTHYROXINE
  2. OMEPRAZOLE. [Suspect]
     Active Substance: OMEPRAZOLE
     Indication: BARRETT^S OESOPHAGUS
     Route: 048
     Dates: start: 20090522, end: 20150109

REACTIONS (10)
  - Muscle spasms [None]
  - Hyperhidrosis [None]
  - Decreased appetite [None]
  - Vertigo [None]
  - Muscular weakness [None]
  - Depression [None]
  - Headache [None]
  - Diarrhoea [None]
  - Dry eye [None]
  - Dyskinesia [None]

NARRATIVE: CASE EVENT DATE: 20100101
